FAERS Safety Report 11122514 (Version 1)
Quarter: 2015Q2

REPORT INFORMATION
  Report Type: Spontaneous
  Country: US (occurrence: US)
  Receive Date: 20150519
  Receipt Date: 20150519
  Transmission Date: 20150821
  Serious: No
  Sender: FDA-Public Use
  Company Number: US-BAUSCH-SYM-2014-21581

PATIENT
  Age: 43 Year
  Sex: Female

DRUGS (2)
  1. MYSOLINE [Suspect]
     Active Substance: PRIMIDONE
     Indication: MYOCLONUS
     Dosage: HALF TABLET AT BEDTIME
     Route: 048
     Dates: start: 20140527
  2. CITALOPRAM [Concomitant]
     Active Substance: CITALOPRAM HYDROBROMIDE
     Indication: PRODUCT USED FOR UNKNOWN INDICATION

REACTIONS (4)
  - Clumsiness [Unknown]
  - Insomnia [Unknown]
  - Dizziness [Unknown]
  - Exophthalmos [Unknown]

NARRATIVE: CASE EVENT DATE: 20140527
